FAERS Safety Report 16760770 (Version 1)
Quarter: 2019Q3

REPORT INFORMATION
  Report Type: Spontaneous
  Country: US (occurrence: US)
  Receive Date: 20190830
  Receipt Date: 20190830
  Transmission Date: 20191005
  Serious: Yes (Other)
  Sender: FDA-Public Use
  Company Number: US-AMGEN-USASP2019135613

PATIENT
  Sex: Female

DRUGS (1)
  1. PROLIA [Suspect]
     Active Substance: DENOSUMAB
     Indication: OSTEOPOROSIS POSTMENOPAUSAL
     Dosage: UNK
     Route: 065

REACTIONS (9)
  - Complication associated with device [Unknown]
  - Retching [Unknown]
  - Lip disorder [Unknown]
  - Choking [Unknown]
  - Taste disorder [Unknown]
  - Vomiting [Unknown]
  - Dysphonia [Unknown]
  - Acne [Unknown]
  - Therapeutic product effect incomplete [Unknown]
